FAERS Safety Report 12607216 (Version 2)
Quarter: 2016Q3

REPORT INFORMATION
  Report Type: Spontaneous
  Country: US (occurrence: US)
  Receive Date: 20160729
  Receipt Date: 20160930
  Transmission Date: 20161109
  Serious: Yes (Hospitalization, Other)
  Sender: FDA-Public Use
  Company Number: US-PFIZER INC-2016358457

PATIENT
  Sex: Male

DRUGS (5)
  1. METHOTREXATE SODIUM. [Suspect]
     Active Substance: METHOTREXATE SODIUM
     Indication: ACUTE LYMPHOCYTIC LEUKAEMIA
     Dosage: UNK, CYCLIC (2 CYCLES, HYPERCVAD WITH MTX (1 IN 1 CYCLICAL))
  2. CYCLOPHOSPHAMIDE. [Suspect]
     Active Substance: CYCLOPHOSPHAMIDE
     Indication: ACUTE LYMPHOCYTIC LEUKAEMIA
     Dosage: UNK (2 CYCLES, HYPERCVAD WITH MTX (1 IN 1 CYCLICAL)
  3. DEXAMETHASONE. [Suspect]
     Active Substance: DEXAMETHASONE
     Indication: ACUTE LYMPHOCYTIC LEUKAEMIA
     Dosage: CYCLIC, 2 CYCLES, HYPERCVAD WITH MTX (1 IN 1 CYCLICAL)
  4. DOXORUBICIN HCL [Suspect]
     Active Substance: DOXORUBICIN HYDROCHLORIDE
     Indication: ACUTE LYMPHOCYTIC LEUKAEMIA
     Dosage: CYCLIC, 2 CYCLES, HYPERCVAD WITH MTX (1 IN 1 CYCLICAL)
  5. VINCRISTINE SULFATE. [Suspect]
     Active Substance: VINCRISTINE SULFATE
     Indication: ACUTE LYMPHOCYTIC LEUKAEMIA
     Dosage: CYCLIC, 2 CYCLES, HYPERCVAD WITH MTX (1 IN 1 CYCLICAL)

REACTIONS (4)
  - Disease progression [Unknown]
  - Subdural haematoma [Unknown]
  - Subdural hygroma [Unknown]
  - Acute lymphocytic leukaemia [Unknown]
